FAERS Safety Report 9189788 (Version 1)
Quarter: 2013Q1

REPORT INFORMATION
  Report Type: Spontaneous
  Country: ES (occurrence: ES)
  Receive Date: 20130326
  Receipt Date: 20130326
  Transmission Date: 20140127
  Serious: Yes (Life-Threatening, Hospitalization, Other)
  Sender: FDA-Public Use
  Company Number: ES-PFIZER INC-2013094379

PATIENT
  Age: 57 Year
  Sex: Male

DRUGS (10)
  1. CARDURAN NEO [Suspect]
     Indication: BENIGN PROSTATIC HYPERPLASIA
     Dosage: 4 MG, 1X/DAY
     Route: 048
     Dates: start: 20120922, end: 20120922
  2. ATACAND [Interacting]
     Indication: HYPERTENSION
     Dosage: 16 MG, 1X/DAY
     Route: 048
     Dates: start: 2007, end: 20120923
  3. LORAZEPAM [Concomitant]
     Indication: PROPHYLAXIS AGAINST ALCOHOLIC WITHDRAWAL SYNDROME
     Dosage: UNK
  4. BENEXOL B1 B6 B12 [Concomitant]
     Dosage: 1 DF, 1X/DAY
     Route: 048
  5. CELLCEPT [Concomitant]
     Indication: LIVER TRANSPLANT
     Dosage: 250 MG, 2X/DAY
     Route: 048
  6. INSULATARD [Concomitant]
     Indication: TYPE 2 DIABETES MELLITUS
     Dosage: 18 IU, 2X/DAY
     Route: 058
     Dates: start: 2007
  7. KONAKION [Concomitant]
     Dosage: UNK
  8. SANDIMMUN NEORAL [Concomitant]
     Indication: LIVER TRANSPLANT
     Dosage: 25 MG, 2X/DAY
     Route: 048
  9. TRANXILIUM [Concomitant]
     Dosage: UNK
  10. URSOCHOL ^ZAMBON^ [Concomitant]
     Indication: BILIARY CIRRHOSIS
     Dosage: 150 MG, 2X/DAY
     Route: 048

REACTIONS (4)
  - Drug interaction [Recovered/Resolved]
  - Hypotension [Recovered/Resolved]
  - Tachycardia [Unknown]
  - Angina pectoris [Unknown]
